FAERS Safety Report 6681706-0 (Version None)
Quarter: 2010Q2

REPORT INFORMATION
  Report Type: 
  Country: None (occurrence: None)
  Receive Date: 20100414
  Receipt Date: 20100409
  Transmission Date: 20101027
  Serious: Yes (Hospitalization, Other)
  Sender: FDA-Public Use
  Company Number: HR-PFIZER INC-2010001460

PATIENT
  Age: 56 Year
  Sex: Male

DRUGS (3)
  1. VIAGRA [Suspect]
     Dosage: 2 TABS OF 50MG, UNK
  2. SINEMET CR [Interacting]
     Dosage: 25-100MG, 4XDAY
  3. NIAR [Concomitant]
     Dosage: 5 MG, 2X/DAY

REACTIONS (5)
  - ANXIETY [None]
  - CHOREOATHETOSIS [None]
  - DRUG INTERACTION [None]
  - ERECTION INCREASED [None]
  - MEDICATION ERROR [None]
